FAERS Safety Report 11319611 (Version 1)
Quarter: 2015Q3

REPORT INFORMATION
  Report Type: Spontaneous
  Country: US (occurrence: None)
  Receive Date: 20150728
  Receipt Date: 20150728
  Transmission Date: 20151125
  Serious: Yes (Disabling)
  Sender: FDA-Public Use
  Company Number: None

PATIENT
  Age: 65 Year
  Sex: Female
  Weight: 113.4 kg

DRUGS (13)
  1. HCTZ [Concomitant]
     Active Substance: HYDROCHLOROTHIAZIDE
  2. CALTRATE [Concomitant]
     Active Substance: CALCIUM CARBONATE
  3. CENTRUM MULTI VITAMIN [Concomitant]
  4. EXCEDERIN MIGRAINE [Concomitant]
  5. METFORMIN [Suspect]
     Active Substance: METFORMIN HYDROCHLORIDE
     Indication: INSULIN RESISTANCE
     Dosage: OVER 8 YEARS?ONE, ONCE DAILY, TAKEN BY MOUTH
     Route: 048
  6. VITAMIN D [Concomitant]
     Active Substance: CHOLECALCIFEROL
  7. VITAMIN E [Concomitant]
     Active Substance: .ALPHA.-TOCOPHEROL
  8. SINGULAIR [Concomitant]
     Active Substance: MONTELUKAST SODIUM
  9. PRAVASTATIN [Concomitant]
     Active Substance: PRAVASTATIN\PRAVASTATIN SODIUM
  10. MOTRIN [Concomitant]
     Active Substance: IBUPROFEN
  11. QUINIPRIL [Concomitant]
  12. VITAMIN C [Concomitant]
     Active Substance: ASCORBIC ACID
  13. OSTEO BI FLEX [Concomitant]

REACTIONS (2)
  - Urinary incontinence [None]
  - Myalgia [None]

NARRATIVE: CASE EVENT DATE: 20150202
